FAERS Safety Report 4715625-3 (Version None)
Quarter: 2005Q3

REPORT INFORMATION
  Report Type: 
  Country: None (occurrence: None)
  Receive Date: 20050715
  Receipt Date: 20050715
  Transmission Date: 20060218
  Serious: Yes (Hospitalization)
  Sender: FDA-Public Use
  Company Number: None

PATIENT
  Age: 89 Year
  Sex: Male
  Weight: 82 kg

DRUGS (12)
  1. WARFARIN 2MG  DUPONT [Suspect]
     Indication: ATRIAL FIBRILLATION
     Dosage: 8 MG /4 MG Q WED/ROW ORAL
     Route: 048
     Dates: start: 19981002, end: 20050714
  2. WARFARIN 2MG  DUPONT [Suspect]
     Indication: CARDIOMYOPATHY
     Dosage: 8 MG /4 MG Q WED/ROW ORAL
     Route: 048
     Dates: start: 19981002, end: 20050714
  3. CAPSAICIN [Concomitant]
  4. CARVEDILOL [Concomitant]
  5. FLUTICASONE PROPIONATE [Concomitant]
  6. FUROSEMIDE [Concomitant]
  7. LISINOPRIL [Concomitant]
  8. LORATADINE [Concomitant]
  9. SERTRALINE [Concomitant]
  10. OMEEPRAZOLE [Concomitant]
  11. TERAZOSIN HCL [Concomitant]
  12. TRAMADOL HCL [Concomitant]

REACTIONS (2)
  - INTERNATIONAL NORMALISED RATIO INCREASED [None]
  - URINARY TRACT INFECTION [None]
